FAERS Safety Report 4583593-3 (Version None)
Quarter: 2005Q1

REPORT INFORMATION
  Report Type: 
  Country: None (occurrence: None)
  Receive Date: 20050211
  Receipt Date: 20050131
  Transmission Date: 20050727
  Serious: Yes (Other)
  Sender: FDA-Public Use
  Company Number: 2005024282

PATIENT
  Age: 70 Year
  Sex: Male

DRUGS (5)
  1. CELEBREX [Suspect]
     Indication: PAIN
     Dosage: 400 MG (200 MG, 2 IN 1 D), ORAL
     Route: 048
     Dates: end: 20050127
  2. ATENOLOL [Concomitant]
  3. ALPRAZOLAM [Concomitant]
  4. VITAMINS (VITAMINS) [Concomitant]
  5. HYDROCHLOROTHIAZIDE [Concomitant]

REACTIONS (6)
  - CARDIOMEGALY [None]
  - CONFUSIONAL STATE [None]
  - JOINT SWELLING [None]
  - OEDEMA PERIPHERAL [None]
  - PERICARDIAL EFFUSION [None]
  - YAWNING [None]
